FAERS Safety Report 8421551-9 (Version None)
Quarter: 2012Q2

REPORT INFORMATION
  Report Type: 
  Country: None (occurrence: None)
  Receive Date: 20120601
  Receipt Date: 20120521
  Transmission Date: 20120825
  Serious: Yes (Hospitalization, Other)
  Sender: FDA-Public Use
  Company Number: MPS1-1000672

PATIENT
  Age: 10 Year
  Sex: Female
  Weight: 16 kg

DRUGS (1)
  1. ALDURAZYME [Suspect]
     Indication: MUCOPOLYSACCHARIDOSIS I
     Dosage: 3 VIALS QW, INTRAVENOUS
     Route: 042
     Dates: start: 20071212

REACTIONS (3)
  - BRONCHOPNEUMONIA [None]
  - RESPIRATORY DISORDER [None]
  - PYREXIA [None]
